FAERS Safety Report 7933479-9 (Version None)
Quarter: 2011Q4

REPORT INFORMATION
  Report Type: 
  Country: None (occurrence: None)
  Receive Date: 20111118
  Receipt Date: 20111107
  Transmission Date: 20120403
  Serious: Yes (Other)
  Sender: FDA-Public Use
  Company Number: 2011SP052427

PATIENT
  Age: 41 Year
  Sex: Female

DRUGS (22)
  1. DIPHENHYDRAMINE HCL [Concomitant]
  2. TEMOZOLOMIDE [Suspect]
     Indication: OVARIAN CANCER
     Dosage: 150 MG/M2; PO
     Route: 048
     Dates: start: 20101111
  3. ABT-888 (VELIPARIB) [Suspect]
     Indication: OVARIAN CANCER
     Dosage: 40 MG; PO
     Route: 048
     Dates: start: 20101111
  4. POTASSIUM ACETATE [Concomitant]
  5. ONDANSETRON [Concomitant]
  6. PANADEINE CO [Concomitant]
  7. POLYETHYLENE GLYCOL [Concomitant]
  8. LISINOPRIL [Concomitant]
  9. HYDROCORTISONE SODIUM SUCCINATE [Concomitant]
  10. ACYCLOVIR SODIUM [Concomitant]
  11. DEXAMETHASONE ACETATE [Concomitant]
  12. DOXORUBICIN HCL [Suspect]
     Indication: OVARIAN CANCER
     Dosage: 50 MG/M2; IV
     Route: 042
     Dates: start: 20100901, end: 20100901
  13. DOXORUBICIN HCL [Suspect]
     Indication: OVARIAN CANCER
     Dosage: 50 MG/M2; IV
     Route: 042
     Dates: start: 20100929, end: 20100929
  14. HYDROCHLOROTHIAZIDE [Concomitant]
  15. ONDANSETRON [Concomitant]
  16. OXYCODONE HCL [Concomitant]
  17. MULTI-VITAMIN [Concomitant]
  18. DUO-C.V.P. [Concomitant]
  19. PROCHOLOROPERZINE EDYSYLATE [Concomitant]
  20. LORAZEPAM [Concomitant]
  21. ONDANSETRON [Concomitant]
  22. DOCUSATE SODIUM [Concomitant]

REACTIONS (1)
  - SQUAMOUS CELL CARCINOMA [None]
